FAERS Safety Report 9028285 (Version 1)
Quarter: 2013Q1

REPORT INFORMATION
  Report Type: Spontaneous
  Country: US (occurrence: None)
  Receive Date: 20130115
  Receipt Date: 20130115
  Transmission Date: 20140127
  Serious: No
  Sender: FDA-Public Use
  Company Number: None

PATIENT
  Age: 69 Year
  Sex: Female
  Weight: 58.97 kg

DRUGS (1)
  1. HYDROMORPHONE [Suspect]
     Dosage: 1 TABLET EVERY 4-6 HRS MOUTH
     Route: 048
     Dates: start: 20121208

REACTIONS (2)
  - Hallucination [None]
  - Rash [None]
